FAERS Safety Report 6464148-2 (Version None)
Quarter: 2009Q4

REPORT INFORMATION
  Report Type: 
  Country: None (occurrence: None)
  Receive Date: 20091130
  Receipt Date: 20091130
  Transmission Date: 20100525
  Serious: Yes (Life-Threatening, Other)
  Sender: FDA-Public Use
  Company Number: None

PATIENT
  Age: 56 Year
  Sex: Female
  Weight: 68.0396 kg

DRUGS (1)
  1. NITROFURABTIUB MONOHYDRATE 100 MG [Suspect]
     Indication: URINARY TRACT INFECTION
     Dosage: 100 MG TWICE A DAY PO
     Route: 048
     Dates: start: 20090911, end: 20090920

REACTIONS (1)
  - LIVER INJURY [None]
